FAERS Safety Report 11757030 (Version 3)
Quarter: 2015Q4

REPORT INFORMATION
  Report Type: Spontaneous
  Country: CA (occurrence: CA)
  Receive Date: 20151120
  Receipt Date: 20151215
  Transmission Date: 20160304
  Serious: Yes (Hospitalization, Other)
  Sender: FDA-Public Use
  Company Number: CA-ROCHE-1663461

PATIENT
  Age: 54 Year
  Sex: Female

DRUGS (2)
  1. XOLAIR [Suspect]
     Active Substance: OMALIZUMAB
     Indication: ASTHMA
     Route: 058
     Dates: start: 20140904
  2. XOLAIR [Suspect]
     Active Substance: OMALIZUMAB
     Route: 058
     Dates: start: 20151206

REACTIONS (6)
  - Blood pressure increased [Unknown]
  - Vascular rupture [Unknown]
  - Pneumonia [Unknown]
  - Petechiae [Unknown]
  - Nasopharyngitis [Unknown]
  - Ear infection [Unknown]

NARRATIVE: CASE EVENT DATE: 201507
